FAERS Safety Report 8923249 (Version 1)
Quarter: 2012Q4

REPORT INFORMATION
  Report Type: Spontaneous
  Country: US (occurrence: None)
  Receive Date: 20121115
  Receipt Date: 20121115
  Transmission Date: 20130627
  Serious: No
  Sender: FDA-Public Use
  Company Number: None

PATIENT
  Age: 62 Year
  Sex: Male

DRUGS (2)
  1. BACTRIM [Suspect]
     Dates: start: 20100911, end: 20101126
  2. IMURAN [Suspect]
     Dates: start: 20100911, end: 20101123

REACTIONS (1)
  - Cholestasis [None]
